FAERS Safety Report 21690824 (Version 1)
Quarter: 2022Q4

REPORT INFORMATION
  Report Type: Report from Study
  Country: CA (occurrence: CA)
  Receive Date: 20221207
  Receipt Date: 20221207
  Transmission Date: 20230113
  Serious: Yes (Other)
  Sender: FDA-Public Use
  Company Number: CA-HLS-202000369

PATIENT
  Age: 58 Year
  Sex: Male
  Weight: 96 kg

DRUGS (1)
  1. CLOZARIL [Suspect]
     Active Substance: CLOZAPINE
     Route: 048
     Dates: start: 20200302

REACTIONS (14)
  - Chest pain [Unknown]
  - Dyspnoea [Unknown]
  - Haematocrit decreased [Unknown]
  - Haemoglobin decreased [Unknown]
  - Orthostatic hypotension [Unknown]
  - Dizziness [Unknown]
  - Lymphocyte count decreased [Unknown]
  - Nausea [Unknown]
  - Red blood cell count decreased [Unknown]
  - Rhinorrhoea [Unknown]
  - Somnolence [Unknown]
  - Suicidal ideation [Unknown]
  - Syncope [Unknown]
  - Asthenia [Unknown]

NARRATIVE: CASE EVENT DATE: 20200428
